FAERS Safety Report 4819805-8 (Version None)
Quarter: 2005Q4

REPORT INFORMATION
  Report Type: 
  Country: None (occurrence: None)
  Receive Date: 20051102
  Receipt Date: 20051020
  Transmission Date: 20060501
  Serious: Yes (Hospitalization)
  Sender: FDA-Public Use
  Company Number: GBR-2005-0001923

PATIENT
  Age: 73 Year
  Sex: Female

DRUGS (3)
  1. BUPRENORPHINE HCL [Suspect]
     Indication: BACK PAIN
     Dosage: SEE IMAGE
     Dates: start: 20050811, end: 20050818
  2. BUPRENORPHINE HCL [Suspect]
     Indication: BACK PAIN
     Dosage: SEE IMAGE
     Dates: start: 20050818, end: 20050921
  3. OXYCODONE HCL [Concomitant]

REACTIONS (1)
  - CERVICOBRACHIAL SYNDROME [None]
